FAERS Safety Report 4807818-1 (Version None)
Quarter: 2005Q4

REPORT INFORMATION
  Report Type: 
  Country: None (occurrence: None)
  Receive Date: 20051020
  Receipt Date: 20051010
  Transmission Date: 20060501
  Serious: Yes (Death, Hospitalization, Other)
  Sender: FDA-Public Use
  Company Number: 2005139478

PATIENT
  Age: 35 Year
  Sex: Male

DRUGS (6)
  1. SERTRALINE HCL [Suspect]
     Indication: MENTAL RETARDATION SEVERITY UNSPECIFIED
     Dosage: 50 MG (100 MG, 1 IN 1 D), ORAL
     Route: 048
     Dates: end: 20050101
  2. AUGMENTINE (AMOXICILLIN SODIUM, AMOXICILLIN TRIHYDRATE, CLAVULANATE PO [Suspect]
     Indication: RESPIRATORY DISORDER
     Dosage: 3 GRAM/600 MG (3 IN 1 D), INTRAVENOUS
     Route: 042
     Dates: start: 20050702, end: 20050708
  3. CIPROFLOXACIN [Suspect]
     Indication: URINARY TRACT INFECTION
     Dosage: 1 GRAM (500 MG, 2 IN 1 D), ORAL
     Route: 048
     Dates: start: 20050707, end: 20050717
  4. SINOGAN (LEVOMEPROMAZINE) [Suspect]
     Indication: MENTAL RETARDATION SEVERITY UNSPECIFIED
     Dosage: 50 MG (100 MG, 1 IN 1 D), ORAL
     Route: 048
     Dates: end: 20050101
  5. CLONAZEPAM [Suspect]
     Indication: MENTAL RETARDATION SEVERITY UNSPECIFIED
     Dosage: 2 MG (2 MG, 1 IN 1 D), ORAL
     Route: 048
     Dates: end: 20050101
  6. RISPERDAL [Suspect]
     Indication: MENTAL RETARDATION SEVERITY UNSPECIFIED
     Dosage: 3 MG (3 MG, 1 IN 1 D), ORAL
     Route: 048
     Dates: end: 20050101

REACTIONS (3)
  - AGRANULOCYTOSIS [None]
  - DRUG INTERACTION [None]
  - PNEUMONIA ASPIRATION [None]
